FAERS Safety Report 8443497-2 (Version None)
Quarter: 2012Q2

REPORT INFORMATION
  Report Type: 
  Country: None (occurrence: None)
  Receive Date: 20120618
  Receipt Date: 20120607
  Transmission Date: 20120825
  Serious: Yes (Other)
  Sender: FDA-Public Use
  Company Number: CA-JNJFOC-20120604978

PATIENT
  Sex: Female
  Weight: 76 kg

DRUGS (12)
  1. ATIVAN [Concomitant]
     Route: 065
  2. NOZINAN [Concomitant]
     Route: 065
  3. IMOVANE [Concomitant]
     Route: 065
  4. CELEXA [Concomitant]
     Route: 065
  5. ACETAMINOPHEN [Concomitant]
     Route: 065
  6. CLONIDINE [Concomitant]
     Route: 065
  7. VITAMIN B-12 [Concomitant]
     Route: 065
  8. SYNTHROID [Concomitant]
     Route: 065
  9. REMICADE [Suspect]
     Indication: CROHN'S DISEASE
     Route: 042
     Dates: start: 20110209
  10. TOPAMAX [Concomitant]
     Route: 065
  11. IMURAN [Concomitant]
     Route: 065
  12. WELLBUTRIN [Concomitant]
     Route: 065

REACTIONS (2)
  - FISTULA [None]
  - HERPES ZOSTER [None]
